FAERS Safety Report 24533255 (Version 1)
Quarter: 2024Q4

REPORT INFORMATION
  Report Type: Spontaneous
  Country: US (occurrence: US)
  Receive Date: 20241022
  Receipt Date: 20241022
  Transmission Date: 20250115
  Serious: Yes (Hospitalization)
  Sender: AUROBINDO
  Company Number: US-AUROBINDO-AUR-APL-2024-050330

PATIENT
  Age: 61 Year
  Sex: Male

DRUGS (12)
  1. AMIODARONE HYDROCHLORIDE [Suspect]
     Active Substance: AMIODARONE HYDROCHLORIDE
     Indication: Atrial fibrillation
     Dosage: 150 MILLIGRAM
     Route: 040
  2. ADENOSINE [Suspect]
     Active Substance: ADENOSINE
     Indication: Atrial fibrillation
     Dosage: 6 MILLIGRAM
     Route: 065
  3. ADENOSINE [Suspect]
     Active Substance: ADENOSINE
     Dosage: 12 MILLIGRAM
     Route: 065
  4. ADENOSINE [Suspect]
     Active Substance: ADENOSINE
     Dosage: 12 MILLIGRAM
     Route: 065
  5. METOPROLOL [Suspect]
     Active Substance: METOPROLOL
     Indication: Atrial fibrillation
     Dosage: 5 MILLIGRAM
     Route: 042
  6. ESMOLOL [Suspect]
     Active Substance: ESMOLOL HYDROCHLORIDE
     Indication: Prophylaxis
     Dosage: UNK
     Route: 065
  7. NOREPINEPHRINE [Suspect]
     Active Substance: NOREPINEPHRINE\NOREPINEPHRINE BITARTRATE
     Indication: Shock
     Dosage: UNK
     Route: 065
  8. NOREPINEPHRINE [Suspect]
     Active Substance: NOREPINEPHRINE\NOREPINEPHRINE BITARTRATE
     Indication: Vasoplegia syndrome
  9. EPINEPHRINE [Suspect]
     Active Substance: EPINEPHRINE
     Indication: Shock
     Dosage: UNK
     Route: 065
  10. EPINEPHRINE [Suspect]
     Active Substance: EPINEPHRINE
     Indication: Vasoplegia syndrome
  11. METHYLENE BLUE [Suspect]
     Active Substance: METHYLENE BLUE
     Indication: Toxicity to various agents
     Dosage: UNK
     Route: 065
  12. LEVOCARNITINE [Suspect]
     Active Substance: LEVOCARNITINE
     Indication: Toxicity to various agents
     Dosage: UNK
     Route: 065

REACTIONS (2)
  - Drug ineffective [Unknown]
  - Hypotension [Unknown]
